FAERS Safety Report 16012589 (Version 2)
Quarter: 2019Q1

REPORT INFORMATION
  Report Type: Spontaneous
  Country: PL (occurrence: PL)
  Receive Date: 20190227
  Receipt Date: 20190301
  Transmission Date: 20190418
  Serious: Yes (Death, Other)
  Sender: FDA-Public Use
  Company Number: PL-009507513-1902POL008377

PATIENT

DRUGS (1)
  1. IMIPENEM AND CILASTATIN [Suspect]
     Active Substance: CILASTATIN SODIUM\IMIPENEM
     Indication: PRODUCT USED FOR UNKNOWN INDICATION
     Dosage: 4G/DAY
     Route: 065

REACTIONS (7)
  - Haemolytic anaemia [Fatal]
  - Oliguria [Fatal]
  - Blood creatinine increased [Fatal]
  - Blood urea increased [Fatal]
  - Blood bilirubin increased [Fatal]
  - Incorrect dosage administered [Fatal]
  - Thrombocytopenia [Fatal]
